FAERS Safety Report 5699373-1 (Version None)
Quarter: 2008Q2

REPORT INFORMATION
  Report Type: 
  Country: None (occurrence: None)
  Receive Date: 20080407
  Receipt Date: 20080331
  Transmission Date: 20081010
  Serious: Yes (Hospitalization)
  Sender: FDA-Public Use
  Company Number: 08-ADE-SU-0003-ACT

PATIENT
  Age: 11 Month
  Sex: Male

DRUGS (3)
  1. ACTHAR [Suspect]
     Indication: INFANTILE SPASMS
     Dosage: 40 IU IM QD WITH TAPER
     Dates: start: 20080103, end: 20080312
  2. CLONAZEPAM 0.2 MG [Concomitant]
  3. VITAMIN B [Concomitant]

REACTIONS (8)
  - ACNE [None]
  - ANOREXIA [None]
  - CHROMATURIA [None]
  - DEHYDRATION [None]
  - DIET REFUSAL [None]
  - FLUID RETENTION [None]
  - ORAL INTAKE REDUCED [None]
  - WEIGHT INCREASED [None]
